FAERS Safety Report 19410929 (Version 1)
Quarter: 2021Q2

REPORT INFORMATION
  Report Type: Spontaneous
  Country: NL (occurrence: PL)
  Receive Date: 20210614
  Receipt Date: 20210614
  Transmission Date: 20210717
  Serious: Yes (Hospitalization, Other)
  Sender: FDA-Public Use
  Company Number: PL-FRESENIUS KABI-FK202105967

PATIENT
  Age: 41 Year
  Sex: Male

DRUGS (16)
  1. VALSARTAN/SACUBITRIL [Suspect]
     Active Substance: SACUBITRIL\VALSARTAN
     Indication: CARDIAC FAILURE
     Dosage: 49/51 MG, 2X
     Route: 065
     Dates: start: 20201125
  2. ENOXAPARIN [Suspect]
     Active Substance: ENOXAPARIN
     Indication: CARDIAC FAILURE
     Dosage: 80 MG, 2X1 AMPOULE
     Route: 058
  3. EPLERENONE. [Suspect]
     Active Substance: EPLERENONE
     Indication: CARDIAC FAILURE
     Dosage: 25 MG
     Route: 065
  4. AMIODARONE [Suspect]
     Active Substance: AMIODARONE
     Dosage: UNK
     Route: 042
     Dates: start: 20201117
  5. LIDOCAINE. [Suspect]
     Active Substance: LIDOCAINE
     Indication: CARDIAC FAILURE
     Dosage: UNK
     Route: 042
     Dates: start: 20201121
  6. PROPRANOLOL [Suspect]
     Active Substance: PROPRANOLOL HYDROCHLORIDE
     Indication: CARDIAC FAILURE
     Dosage: 20 MG, 3X
     Route: 065
     Dates: start: 20201120
  7. TORASEMIDE [Suspect]
     Active Substance: TORSEMIDE
     Indication: CARDIAC FAILURE
     Dosage: 20 MG
     Route: 048
  8. AMIODARONE [Suspect]
     Active Substance: AMIODARONE
     Indication: CARDIAC FAILURE
     Dosage: UNK
     Route: 042
     Dates: start: 20201123
  9. VALSARTAN/SACUBITRIL [Suspect]
     Active Substance: SACUBITRIL\VALSARTAN
     Dosage: 24/26 MG, 2X1 TABLET
     Route: 065
     Dates: start: 20201120
  10. AMIODARONE [Suspect]
     Active Substance: AMIODARONE
     Dosage: UNK
     Route: 042
     Dates: start: 20201121
  11. FUROSEMIDE (MANUFACTURER UNKNOWN) [Suspect]
     Active Substance: FUROSEMIDE
     Indication: CARDIAC FAILURE
     Dosage: UNK (2X1 AMPULE)
     Route: 042
  12. CARVEDILOL. [Suspect]
     Active Substance: CARVEDILOL
     Indication: CARDIAC FAILURE
     Dosage: 3.125 MG
     Route: 065
  13. METOPROLOL SUCCINATE. [Suspect]
     Active Substance: METOPROLOL SUCCINATE
     Indication: CARDIAC FAILURE
     Dosage: 50 MG, 2X
     Route: 065
     Dates: start: 20201123
  14. DIGOXIN. [Suspect]
     Active Substance: DIGOXIN
     Indication: CARDIAC FAILURE
     Dosage: 1 AMPOULE
     Route: 042
  15. PERINDOPRIL [Suspect]
     Active Substance: PERINDOPRIL
     Indication: CARDIAC FAILURE
     Dosage: 5 MG
     Route: 065
  16. ATORVASTATIN [Suspect]
     Active Substance: ATORVASTATIN
     Indication: CARDIAC FAILURE
     Dosage: 80 MG
     Route: 065

REACTIONS (11)
  - Cardiac arrest [Recovered/Resolved]
  - Cardiac arrest [Recovered/Resolved]
  - Pyrexia [Unknown]
  - Cardiac arrest [Recovered/Resolved]
  - Psychotic disorder [Unknown]
  - Cardiac arrest [Recovered/Resolved]
  - Hypotonia [Unknown]
  - Cardiac arrest [Recovered/Resolved]
  - Myocarditis [Unknown]
  - Product use in unapproved indication [Unknown]
  - Electrocardiogram QT prolonged [Unknown]

NARRATIVE: CASE EVENT DATE: 20201117
